FAERS Safety Report 16952468 (Version 1)
Quarter: 2019Q4

REPORT INFORMATION
  Report Type: Spontaneous
  Country: US (occurrence: US)
  Receive Date: 20191022
  Receipt Date: 20191022
  Transmission Date: 20200122
  Serious: Yes (Other)
  Sender: FDA-Public Use
  Company Number: None

PATIENT
  Age: 38 Year
  Sex: Female
  Weight: 128.25 kg

DRUGS (21)
  1. ROVUSTATIN 5MG DAILY [Concomitant]
  2. METOPROLOL ER SUCCINATE 50MG [Concomitant]
  3. OCREVUS IV 300MG EVERY 6 MONTHS [Concomitant]
  4. CALCIUM CITRATE 500MG BID [Concomitant]
  5. PHILLIPS COLON HEALTH DAILY [Concomitant]
  6. CEYLON CINNAMON 1200MG BID [Concomitant]
  7. BUPROPION 150MG BID [Concomitant]
     Active Substance: BUPROPION
  8. CARBAMAZEPINE 200MG TID [Concomitant]
  9. MAGNESIUM 400MG DAILY [Concomitant]
  10. EMGALITY INJECTION 120 MG/ML [Concomitant]
  11. PRISTIQ ER 100MG [Concomitant]
  12. MIRENA [Concomitant]
     Active Substance: LEVONORGESTREL
  13. OMEGA 3 800MG [Concomitant]
  14. KEPPRA 100MG BID [Concomitant]
  15. DEPAKOTE 500MG BID [Concomitant]
  16. VIT D3 5,000MG DAILY [Concomitant]
  17. MULTIVITAMINS WOMENS [Concomitant]
  18. EMGALITY [Suspect]
     Active Substance: GALCANEZUMAB-GNLM
     Indication: MIGRAINE PROPHYLAXIS
     Dosage: ?          QUANTITY:1 INJECTION(S);OTHER FREQUENCY:MONTHLY;?
     Route: 058
     Dates: start: 20190520, end: 20191022
  19. GABAPENTIN 600MG TID [Concomitant]
  20. RANITIDINE 300MG DAILY [Concomitant]
  21. ZYRTEC DAILY [Concomitant]

REACTIONS (3)
  - Myalgia [None]
  - Arthralgia [None]
  - Therapy non-responder [None]

NARRATIVE: CASE EVENT DATE: 20191021
